FAERS Safety Report 6820192-4 (Version None)
Quarter: 2010Q3

REPORT INFORMATION
  Report Type: 
  Country: None (occurrence: None)
  Receive Date: 20100707
  Receipt Date: 20100623
  Transmission Date: 20110219
  Serious: Yes (Other)
  Sender: FDA-Public Use
  Company Number: FR-MERCK-1006FRA00117

PATIENT
  Age: 84 Year
  Sex: Male

DRUGS (7)
  1. JANUVIA [Suspect]
     Indication: DIABETES MELLITUS
     Route: 048
     Dates: start: 20100420, end: 20100621
  2. FLECAINIDE ACETATE [Concomitant]
     Indication: ARRHYTHMIA
     Route: 065
  3. GLICLAZIDE [Concomitant]
     Route: 048
  4. PREDNISONE [Concomitant]
     Route: 048
  5. OMEPRAZOLE [Concomitant]
     Route: 065
  6. BENSERAZIDE HYDROCHLORIDE AND LEVODOPA [Concomitant]
     Indication: PARKINSON'S DISEASE
     Route: 048
  7. BENSERAZIDE HYDROCHLORIDE AND LEVODOPA [Concomitant]
     Route: 048

REACTIONS (2)
  - HEPATITIS [None]
  - OEDEMA PERIPHERAL [None]
